FAERS Safety Report 24883760 (Version 3)
Quarter: 2025Q2

REPORT INFORMATION
  Report Type: Spontaneous
  Country: BR (occurrence: BR)
  Receive Date: 20250124
  Receipt Date: 20250417
  Transmission Date: 20250716
  Serious: Yes (Life-Threatening)
  Sender: BOEHRINGER INGELHEIM
  Company Number: BR-Komodo Health-a23aa000005M0jFAAS

PATIENT
  Age: 63 Year
  Sex: Male
  Weight: 82 kg

DRUGS (6)
  1. OLODATEROL HYDROCHLORIDE\TIOTROPIUM BROMIDE MONOHYDRATE [Suspect]
     Active Substance: OLODATEROL HYDROCHLORIDE\TIOTROPIUM BROMIDE MONOHYDRATE
     Indication: Chronic obstructive pulmonary disease
     Dosage: TWO CONSECUTIVE PUFFS, IN THE MORNING, ORALLY
     Dates: start: 2022, end: 20250119
  2. OLODATEROL HYDROCHLORIDE\TIOTROPIUM BROMIDE MONOHYDRATE [Suspect]
     Active Substance: OLODATEROL HYDROCHLORIDE\TIOTROPIUM BROMIDE MONOHYDRATE
  3. ALBUTEROL [Concomitant]
     Active Substance: ALBUTEROL
     Indication: Chronic obstructive pulmonary disease
  4. ENALAPRIL [Concomitant]
     Active Substance: ENALAPRIL
     Indication: Hypertension
     Dosage: 2 TABLETS A DAY, IN THE MORNING AND IN THE AFTERNOON
     Dates: start: 2021
  5. FUROSEMIDE [Concomitant]
     Active Substance: FUROSEMIDE
     Indication: Hypertension
     Dosage: 2 TABLETS A DAY, IN THE MORNING AND IN THE AFTERNOON
     Dates: start: 2021
  6. Oxig?nio concentrado [Concomitant]
     Indication: Product used for unknown indication

REACTIONS (8)
  - General physical health deterioration [Unknown]
  - Muscular weakness [Recovered/Resolved]
  - Mobility decreased [Recovered/Resolved]
  - Fatigue [Recovered/Resolved]
  - Device physical property issue [Recovered/Resolved]
  - Dyspnoea [Unknown]
  - Traumatic lung injury [Unknown]
  - Malaise [Unknown]

NARRATIVE: CASE EVENT DATE: 20250120
